FAERS Safety Report 6071659-0 (Version None)
Quarter: 2009Q1

REPORT INFORMATION
  Report Type: 
  Country: None (occurrence: None)
  Receive Date: 20090209
  Receipt Date: 20090209
  Transmission Date: 20090719
  Serious: Yes (Life-Threatening, Hospitalization, Disabling, Other)
  Sender: FDA-Public Use
  Company Number: None

PATIENT
  Age: 78 Year
  Sex: Male
  Weight: 77.1115 kg

DRUGS (2)
  1. ADVAIR DISKUS 100/50 [Suspect]
     Indication: ASTHMA
  2. ASMANEX TWISTHALER [Suspect]

REACTIONS (7)
  - APHONIA [None]
  - ATRIAL FIBRILLATION [None]
  - DYSPHONIA [None]
  - DYSPNOEA [None]
  - MYOCARDIAL INFARCTION [None]
  - PALPITATIONS [None]
  - THROAT IRRITATION [None]
